FAERS Safety Report 8429383-2 (Version None)
Quarter: 2012Q2

REPORT INFORMATION
  Report Type: 
  Country: None (occurrence: None)
  Receive Date: 20120612
  Receipt Date: 20120612
  Transmission Date: 20120825
  Serious: Yes (Death)
  Sender: FDA-Public Use
  Company Number: US-PFIZER INC-2011004779

PATIENT
  Age: 38 Year
  Sex: Female

DRUGS (3)
  1. TOPIRAMATE [Suspect]
  2. VERAPAMIL HCL [Suspect]
  3. HYDROMORPHONE [Suspect]

REACTIONS (1)
  - COMPLETED SUICIDE [None]
